FAERS Safety Report 7744082-8 (Version None)
Quarter: 2011Q3

REPORT INFORMATION
  Report Type: 
  Country: None (occurrence: None)
  Receive Date: 20110909
  Receipt Date: 20110909
  Transmission Date: 20111222
  Serious: Yes (Hospitalization, Disabling, Other)
  Sender: FDA-Public Use
  Company Number: None

PATIENT
  Sex: Female
  Weight: 55.3388 kg

DRUGS (3)
  1. LEVAQUIN [Suspect]
     Indication: CYSTITIS
     Dosage: X1 DAILY ORALLY
     Route: 048
     Dates: start: 20110122
  2. CIPRO [Suspect]
     Indication: CYSTITIS
     Dosage: X1 DAILY ORALLY
     Route: 048
     Dates: start: 20101226
  3. CIPRO [Suspect]
     Indication: CYSTITIS
     Dosage: X1 DAILY ORALLY
     Route: 048
     Dates: start: 20100625

REACTIONS (2)
  - TENDON RUPTURE [None]
  - PARAESTHESIA [None]
